FAERS Safety Report 10878436 (Version 1)
Quarter: 2015Q1

REPORT INFORMATION
  Report Type: Report from Study
  Country: US (occurrence: US)
  Receive Date: 20150302
  Receipt Date: 20150302
  Transmission Date: 20150721
  Serious: No
  Sender: FDA-Public Use
  Company Number: US-ABBVIE-14P-163-1240225-00

PATIENT
  Age: 45 Year
  Sex: Male
  Weight: 73.55 kg

DRUGS (6)
  1. ANDROGEL [Suspect]
     Active Substance: TESTOSTERONE
     Indication: ERECTILE DYSFUNCTION
     Route: 061
     Dates: start: 200901, end: 20140428
  2. CIALIS [Concomitant]
     Active Substance: TADALAFIL
     Indication: ERECTILE DYSFUNCTION
  3. CADUET [Concomitant]
     Active Substance: AMLODIPINE BESYLATE\ATORVASTATIN CALCIUM
     Indication: HYPERTENSION
  4. ANDROGEL [Suspect]
     Active Substance: TESTOSTERONE
     Indication: OFF LABEL USE
  5. ANDROGEL [Suspect]
     Active Substance: TESTOSTERONE
     Indication: ERECTILE DYSFUNCTION
     Route: 061
     Dates: start: 20140429, end: 20140518
  6. ACCUPRIL [Concomitant]
     Active Substance: QUINAPRIL HYDROCHLORIDE
     Indication: HYPERTENSION

REACTIONS (3)
  - Fatigue [Not Recovered/Not Resolved]
  - Pain [Not Recovered/Not Resolved]
  - Off label use [Unknown]

NARRATIVE: CASE EVENT DATE: 200901
